FAERS Safety Report 4897987-X (Version None)
Quarter: 2006Q1

REPORT INFORMATION
  Report Type: 
  Country: None (occurrence: None)
  Receive Date: 20060201
  Receipt Date: 20051005
  Transmission Date: 20060701
  Serious: Yes (Life-Threatening, Hospitalization, Other)
  Sender: FDA-Public Use
  Company Number: ZA-SANOFI-SYNTHELABO-A01200506812

PATIENT
  Sex: Male
  Weight: 97 kg

DRUGS (5)
  1. ELOXATIN [Suspect]
     Indication: COLON CANCER METASTATIC
     Route: 041
     Dates: start: 20050905, end: 20050905
  2. ISOVORIN [Concomitant]
     Indication: COLON CANCER METASTATIC
     Route: 042
     Dates: start: 20050822, end: 20050905
  3. FLUOROURACIL [Concomitant]
     Indication: COLON CANCER METASTATIC
     Dosage: 800 MG/4800 MG
     Route: 042
     Dates: start: 20050822, end: 20050905
  4. DECADRON [Concomitant]
     Indication: NAUSEA
     Dates: start: 20050822, end: 20050905
  5. KYTRIL [Concomitant]
     Indication: NAUSEA
     Route: 042
     Dates: start: 20050822, end: 20050905

REACTIONS (1)
  - GUILLAIN-BARRE SYNDROME [None]
